FAERS Safety Report 7700717-7 (Version None)
Quarter: 2011Q3

REPORT INFORMATION
  Report Type: 
  Country: None (occurrence: None)
  Receive Date: 20110822
  Receipt Date: 20110817
  Transmission Date: 20111222
  Serious: Yes (Death, Other)
  Sender: FDA-Public Use
  Company Number: JP-BAYER-200912098BYL

PATIENT
  Age: 66 Year
  Sex: Male
  Weight: 57 kg

DRUGS (12)
  1. NEXAVAR [Suspect]
     Indication: HEPATIC NEOPLASM MALIGNANT
     Dosage: 800 MG (DAILY DOSE), , ORAL
     Route: 048
     Dates: start: 20090526, end: 20090602
  2. NEXAVAR [Suspect]
     Dosage: 400 MG (DAILY DOSE), , ORAL
     Route: 048
     Dates: start: 20090610, end: 20090706
  3. LANSOPRAZOLE [Concomitant]
     Indication: PROPHYLAXIS
     Dosage: 30 MG (DAILY DOSE), , ORAL
     Route: 048
     Dates: start: 20090423
  4. NEXAVAR [Suspect]
     Dosage: 800 MG (DAILY DOSE), , ORAL
     Route: 048
     Dates: start: 20090707, end: 20100106
  5. PHENOBARBITAL TAB [Concomitant]
     Indication: CONVULSION PROPHYLAXIS
     Dosage: 50 MG (DAILY DOSE), , ORAL
     Route: 048
     Dates: start: 20090413
  6. SOLUTIONS FOR PARENTERAL NUTRITION [Concomitant]
     Indication: NUTRITIONAL SUPPORT
     Dosage: 1500 ML (DAILY DOSE), , OTHER
     Route: 050
     Dates: start: 20090416, end: 20090810
  7. PRIMPERAN TAB [Concomitant]
     Indication: INCREASED APPETITE
     Dosage: 3 DF (DAILY DOSE), , ORAL
     Route: 048
     Dates: start: 20090428, end: 20090602
  8. ENSURE [MINERALS NOS,VITAMINS NOS] [Concomitant]
     Indication: NUTRITIONAL SUPPORT
     Dosage: 1500 ML (DAILY DOSE), , ORAL
     Route: 048
     Dates: start: 20090811
  9. NEXAVAR [Suspect]
     Dosage: 800 MG (DAILY DOSE), , ORAL
     Route: 048
     Dates: start: 20090606, end: 20090609
  10. TPN [Concomitant]
     Indication: NUTRITIONAL SUPPORT
     Dosage: 1500 ML (DAILY DOSE), , OTHER
     Route: 050
     Dates: start: 20090416, end: 20090810
  11. PHOSPHATIDYL CHOLINE [Concomitant]
     Dosage: 1500 MG (DAILY DOSE), , ORAL
     Route: 048
     Dates: start: 20090422, end: 20090814
  12. PHOSPHATIDYL CHOLINE [Concomitant]
     Dosage: 1500 MG (DAILY DOSE), , ORAL
     Route: 048
     Dates: start: 20090422, end: 20090814

REACTIONS (13)
  - BENIGN PROSTATIC HYPERPLASIA [None]
  - DEPRESSION [None]
  - SPUTUM INCREASED [None]
  - HEPATIC NEOPLASM MALIGNANT [None]
  - ATRIAL FIBRILLATION [None]
  - PLEURAL HAEMORRHAGE [None]
  - PROTEIN INDUCED BY VITAMIN K ABSENCE OR ANTAGONIST II INCREASED [None]
  - PNEUMONIA [None]
  - COUGH [None]
  - NEUTROPHIL COUNT INCREASED [None]
  - HYPERTENSION [None]
  - PALMAR-PLANTAR ERYTHRODYSAESTHESIA SYNDROME [None]
  - GAMMA-GLUTAMYLTRANSFERASE INCREASED [None]
